FAERS Safety Report 8131175-9 (Version None)
Quarter: 2012Q1

REPORT INFORMATION
  Report Type: 
  Country: None (occurrence: None)
  Receive Date: 20120213
  Receipt Date: 20120201
  Transmission Date: 20120608
  Serious: Yes (Hospitalization)
  Sender: FDA-Public Use
  Company Number: US-JNJFOC-20120203075

PATIENT
  Sex: Female
  Weight: 76.2 kg

DRUGS (1)
  1. REMICADE [Suspect]
     Indication: RHEUMATOID ARTHRITIS
     Route: 042
     Dates: start: 20050101

REACTIONS (13)
  - MYOCARDIAL INFARCTION [None]
  - LOSS OF CONSCIOUSNESS [None]
  - GASTRIC DISORDER [None]
  - GALLBLADDER DISORDER [None]
  - STAPHYLOCOCCAL INFECTION [None]
  - PNEUMONIA [None]
  - GASTROINTESTINAL INFECTION [None]
  - BODY HEIGHT DECREASED [None]
  - ASTHENIA [None]
  - ABDOMINAL DISCOMFORT [None]
  - FATIGUE [None]
  - ABNORMAL LOSS OF WEIGHT [None]
  - BLOOD GLUCOSE DECREASED [None]
